FAERS Safety Report 15810297 (Version 1)
Quarter: 2019Q1

REPORT INFORMATION
  Report Type: Spontaneous
  Country: US (occurrence: US)
  Receive Date: 20190111
  Receipt Date: 20190111
  Transmission Date: 20190417
  Serious: No
  Sender: FDA-Public Use
  Company Number: US-ROCHE-2160541

PATIENT
  Age: 33 Year
  Sex: Male

DRUGS (1)
  1. RITUXAN [Suspect]
     Active Substance: RITUXIMAB
     Indication: PRODUCT USED FOR UNKNOWN INDICATION
     Dosage: MOST RECENT RITUXIMAB INFUSION ON 17/JUL/2018
     Route: 065
     Dates: start: 20180201

REACTIONS (3)
  - Dyspnoea [Recovered/Resolved]
  - Urticaria [Recovered/Resolved]
  - Anxiety [Recovered/Resolved]

NARRATIVE: CASE EVENT DATE: 20180717
